FAERS Safety Report 8776959 (Version 2)
Quarter: 2012Q4

REPORT INFORMATION
  Report Type: 
  Country: US (occurrence: US)
  Receive Date: 20120911
  Receipt Date: 20121002
  Transmission Date: 20130627
  Serious: Yes (Other)
  Sender: FDA-Public Use
  Company Number: US-GLAXOSMITHKLINE-A0992580A

PATIENT
  Age: 79 Year
  Sex: Female

DRUGS (4)
  1. ADVAIR [Suspect]
     Indication: EMPHYSEMA
     Route: 055
     Dates: start: 2006
  2. OXYGEN [Concomitant]
  3. ATROVENT [Concomitant]
  4. ASPIRIN [Concomitant]

REACTIONS (3)
  - Pneumonia [Recovered/Resolved]
  - Thrombosis [Recovered/Resolved]
  - Polyp [Recovering/Resolving]
